FAERS Safety Report 9144996 (Version 1)
Quarter: 2013Q1

REPORT INFORMATION
  Report Type: Spontaneous
  Country: US (occurrence: US)
  Receive Date: 20130307
  Receipt Date: 20130307
  Transmission Date: 20140127
  Serious: No
  Sender: FDA-Public Use
  Company Number: US-BIOGENIDEC-2013BI019086

PATIENT
  Age: 49 Year
  Sex: Female

DRUGS (1)
  1. TYSABRI [Suspect]
     Indication: MULTIPLE SCLEROSIS
     Route: 042
     Dates: start: 20111027

REACTIONS (8)
  - Personality change [Not Recovered/Not Resolved]
  - Mood altered [Not Recovered/Not Resolved]
  - Hyperhidrosis [Recovered/Resolved with Sequelae]
  - Memory impairment [Recovered/Resolved]
  - Bladder disorder [Recovered/Resolved with Sequelae]
  - Drug effect decreased [Not Recovered/Not Resolved]
  - Fatigue [Not Recovered/Not Resolved]
  - Oropharyngeal pain [Recovered/Resolved with Sequelae]
